FAERS Safety Report 17901035 (Version 2)
Quarter: 2020Q2

REPORT INFORMATION
  Report Type: Report from Study
  Country: US (occurrence: US)
  Receive Date: 20200616
  Receipt Date: 20200620
  Transmission Date: 20200714
  Serious: No
  Sender: FDA-Public Use
  Company Number: US-SHIRE-US202015842

PATIENT
  Age: 35 Year
  Sex: Female
  Weight: 61.22 kg

DRUGS (3)
  1. MOTRIN IB [Concomitant]
     Active Substance: IBUPROFEN
     Indication: PRODUCT USED FOR UNKNOWN INDICATION
  2. GATTEX [Suspect]
     Active Substance: TEDUGLUTIDE\WATER
     Indication: INTESTINAL FISTULA
     Dosage: 3.1 MILLIGRAM, 1X/DAY:QD
     Route: 058
     Dates: start: 20190227
  3. MOTRIN CHILDREN [Concomitant]
     Active Substance: IBUPROFEN
     Indication: PRODUCT USED FOR UNKNOWN INDICATION

REACTIONS (4)
  - Inappropriate schedule of product administration [Unknown]
  - Stoma complication [Unknown]
  - Intentional product use issue [Unknown]
  - Dermatitis acneiform [Not Recovered/Not Resolved]

NARRATIVE: CASE EVENT DATE: 20200501
